FAERS Safety Report 6696038-4 (Version None)
Quarter: 2010Q2

REPORT INFORMATION
  Report Type: 
  Country: None (occurrence: None)
  Receive Date: 20100426
  Receipt Date: 20100414
  Transmission Date: 20101027
  Serious: Yes (Other)
  Sender: FDA-Public Use
  Company Number: PHHY2010CA22434

PATIENT
  Age: 38 Year
  Sex: Female
  Weight: 57 kg

DRUGS (5)
  1. EXJADE [Suspect]
     Indication: CONGENITAL APLASTIC ANAEMIA
     Dosage: 1125 MG, QD (20MG/DAY)
     Route: 048
     Dates: start: 20090101, end: 20090803
  2. ACTONEL [Concomitant]
  3. WARFARIN SODIUM [Concomitant]
  4. RABEPRAZOLE SODIUM [Concomitant]
  5. MEDROXYPROGESTERONE [Concomitant]

REACTIONS (5)
  - ABDOMINAL PAIN [None]
  - BLOOD CREATINE INCREASED [None]
  - HEPATITIS [None]
  - HYDRONEPHROSIS [None]
  - LIVER FUNCTION TEST ABNORMAL [None]
